FAERS Safety Report 9822740 (Version 1)
Quarter: 2014Q1

REPORT INFORMATION
  Report Type: Spontaneous
  Country: US (occurrence: US)
  Receive Date: 20140116
  Receipt Date: 20140116
  Transmission Date: 20141002
  Serious: Yes (Hospitalization, Other)
  Sender: FDA-Public Use
  Company Number: US-FRI-1000052742

PATIENT
  Sex: Male

DRUGS (4)
  1. NAMENDA [Suspect]
     Indication: DEMENTIA ALZHEIMER^S TYPE
     Dosage: 20 MG
     Dates: start: 2006, end: 2011
  2. HALDOL [Suspect]
     Indication: AGGRESSION
     Dates: start: 2006, end: 2006
  3. HALDOL [Suspect]
     Indication: DEMENTIA ALZHEIMER^S TYPE
  4. LOSARTAN [Concomitant]
     Indication: HYPERTENSION

REACTIONS (3)
  - Dementia Alzheimer^s type [Not Recovered/Not Resolved]
  - Brain death [Not Recovered/Not Resolved]
  - Mass [Unknown]
